FAERS Safety Report 22935606 (Version 4)
Quarter: 2023Q4

REPORT INFORMATION
  Report Type: Spontaneous
  Country: CZ (occurrence: CZ)
  Receive Date: 20230912
  Receipt Date: 20231017
  Transmission Date: 20240109
  Serious: Yes (Hospitalization, Other)
  Sender: FDA-Public Use
  Company Number: CZ-HALEON-CZCH2023HLN040677

PATIENT
  Age: 17 Year
  Sex: Female

DRUGS (12)
  1. IBUPROFEN [Suspect]
     Active Substance: IBUPROFEN
     Indication: Product used for unknown indication
     Dosage: 100 DOSAGE FORM, QD (DAILY DOSE: 100 TABLETS)
     Route: 048
  2. METOPROLOL [Suspect]
     Active Substance: METOPROLOL
     Indication: Product used for unknown indication
     Dosage: 100 DOSAGE FORM, QD (DAILY DOSE: 100 TABLETS)
     Route: 048
  3. AMBROXOL HYDROCHLORIDE [Suspect]
     Active Substance: AMBROXOL HYDROCHLORIDE
     Indication: Product used for unknown indication
     Dosage: 10 DOSAGE FORM, QD (DAILY DOSE: 10 TABLETS)
     Route: 048
  4. ACETAMINOPHEN [Suspect]
     Active Substance: ACETAMINOPHEN
     Indication: Product used for unknown indication
     Dosage: UNK
     Route: 065
  5. PROGESTERONE [Suspect]
     Active Substance: PROGESTERONE
     Indication: Product used for unknown indication
     Dosage: 15 DOSAGE FORM (15 TABLETS)
     Route: 048
  6. PROGESTERONE [Suspect]
     Active Substance: PROGESTERONE
     Dosage: 30 DOSAGE FORM, QD (DAILY DOSE: 30 TABLETS)
     Route: 048
  7. METHYLPHENIDATE HYDROCHLORIDE [Suspect]
     Active Substance: METHYLPHENIDATE HYDROCHLORIDE
     Indication: Product used for unknown indication
     Dosage: 30 DOSAGE FORM, QD (DAILY DOSE: 30 TABLETS)
     Route: 048
  8. PROPIVERINE [Suspect]
     Active Substance: PROPIVERINE
     Indication: Product used for unknown indication
     Dosage: 14 DOSAGE FORM, QD (DAILY DOSE: 14 TABLETS)
     Route: 048
  9. DROTAVERINE HYDROCHLORIDE [Suspect]
     Active Substance: DROTAVERINE HYDROCHLORIDE
     Indication: Product used for unknown indication
     Dosage: 20 DOSAGE FORM, QD (DAILY DOSE: 20 TABLETS)
     Route: 048
  10. NORFLOXACIN [Suspect]
     Active Substance: NORFLOXACIN
     Indication: Product used for unknown indication
     Dosage: 20 DOSAGE FORM, QD (DAILY DOSE: 20 TABLETS)
     Route: 048
  11. LOPERAMIDE [Suspect]
     Active Substance: LOPERAMIDE
     Indication: Product used for unknown indication
     Dosage: 8 DOSAGE FORM, QD (DAILY DOSE: 8 TABLETS)
     Route: 048
  12. METAMIZOLE SODIUM [Suspect]
     Active Substance: METAMIZOLE SODIUM
     Indication: Product used for unknown indication
     Dosage: 10 DOSAGE FORM, QD (DAILY DOSE: 10 TABLETS)
     Route: 048

REACTIONS (11)
  - Suicide attempt [Recovered/Resolved]
  - Poisoning [Unknown]
  - Toxicity to various agents [Recovered/Resolved]
  - Mydriasis [Recovering/Resolving]
  - Dyslalia [Recovering/Resolving]
  - Bradycardia [Recovering/Resolving]
  - Confusional state [Recovering/Resolving]
  - Drug abuse [Unknown]
  - Intentional overdose [Recovered/Resolved]
  - Metabolic acidosis [Recovering/Resolving]
  - Acidosis [Recovering/Resolving]
